FAERS Safety Report 4362778-5 (Version None)
Quarter: 2004Q2

REPORT INFORMATION
  Report Type: 
  Country: None (occurrence: None)
  Receive Date: 20040518
  Receipt Date: 20040503
  Transmission Date: 20050107
  Serious: Yes (Death, Hospitalization)
  Sender: FDA-Public Use
  Company Number: 04P-163-0259779-00

PATIENT
  Age: 49 Year
  Sex: Male

DRUGS (4)
  1. KALETRA [Suspect]
     Indication: HIV INFECTION
  2. DELAVIRDINE (DELAVIRDINE) [Suspect]
     Indication: HIV INFECTION
     Dosage: 600 MG, 2 IN 1 D
  3. DIDANOSINE (DIDANOSINE) [Suspect]
     Indication: HIV INFECTION
     Dosage: 400 MG, 1 IN 1 D
  4. PACLITAXEL [Suspect]
     Indication: KAPOSI'S SARCOMA
     Dosage: 100 MG/M SQUARED OVER 3 HOURS, IV
     Route: 042

REACTIONS (20)
  - ALPHA HAEMOLYTIC STREPTOCOCCAL INFECTION [None]
  - AORTIC EMBOLUS [None]
  - ARTHRALGIA [None]
  - DRUG INTERACTION [None]
  - DRUG TOXICITY [None]
  - ELECTROMECHANICAL DISSOCIATION [None]
  - GASTROINTESTINAL MUCOSITIS [None]
  - GENERAL PHYSICAL HEALTH DETERIORATION [None]
  - HAEMATOCRIT DECREASED [None]
  - HYPOTENSION [None]
  - KAPOSI'S SARCOMA [None]
  - MALIGNANT NEOPLASM PROGRESSION [None]
  - MYALGIA [None]
  - PLATELET COUNT DECREASED [None]
  - PNEUMONIA [None]
  - PNEUMONIA STREPTOCOCCAL [None]
  - PRODUCTIVE COUGH [None]
  - PYREXIA [None]
  - TACHYPNOEA [None]
  - WHITE BLOOD CELL COUNT DECREASED [None]
